FAERS Safety Report 24859794 (Version 4)
Quarter: 2025Q3

REPORT INFORMATION
  Report Type: Report from Study
  Country: US (occurrence: US)
  Receive Date: 20250119
  Receipt Date: 20250803
  Transmission Date: 20251020
  Serious: Yes (Other)
  Sender: ALEXION PHARMACEUTICALS
  Company Number: US-AstraZeneca-CH-00786918A

PATIENT
  Age: 61 Year
  Sex: Female
  Weight: 82.993 kg

DRUGS (7)
  1. TEZEPELUMAB [Suspect]
     Active Substance: TEZEPELUMAB
     Indication: Asthma
     Dosage: 210 MILLIGRAM PER MILLILITRE, Q4W
     Dates: start: 20231219
  2. TEZEPELUMAB [Suspect]
     Active Substance: TEZEPELUMAB
  3. TEZEPELUMAB [Suspect]
     Active Substance: TEZEPELUMAB
  4. FASENRA [Suspect]
     Active Substance: BENRALIZUMAB
     Route: 065
  5. SYMBICORT [Suspect]
     Active Substance: BUDESONIDE\FORMOTEROL FUMARATE DIHYDRATE
     Route: 065
  6. ESOMEPRAZOLE MAGNESIUM [Suspect]
     Active Substance: ESOMEPRAZOLE MAGNESIUM
     Route: 065
  7. CODEINE [Suspect]
     Active Substance: CODEINE
     Route: 065

REACTIONS (37)
  - Neoplasm malignant [Unknown]
  - Brain neoplasm benign [Unknown]
  - Hepatic neoplasm [Unknown]
  - Cough [Recovering/Resolving]
  - Wheezing [Unknown]
  - Vomiting [Unknown]
  - Diarrhoea [Unknown]
  - Dyspnoea [Recovering/Resolving]
  - Lymphadenopathy [Unknown]
  - Pyrexia [Unknown]
  - Nasal congestion [Unknown]
  - Sinusitis [Unknown]
  - Rhinitis [Unknown]
  - Insurance issue [Unknown]
  - Asthma [Unknown]
  - Inappropriate schedule of product administration [Unknown]
  - Malaise [Unknown]
  - Drug ineffective [Unknown]
  - Brain tumour operation [Unknown]
  - Respiration abnormal [Unknown]
  - Oxygen saturation [Unknown]
  - Fatigue [Unknown]
  - Benign breast neoplasm [Unknown]
  - Oropharyngeal pain [Unknown]
  - Ear pain [Unknown]
  - Hepatic lesion [Unknown]
  - Headache [Unknown]
  - Mammogram abnormal [Unknown]
  - Respiratory tract infection [Unknown]
  - Dyspnoea [Unknown]
  - Catheterisation cardiac [Unknown]
  - Hypergammaglobulinaemia benign monoclonal [Unknown]
  - Biopsy bone marrow [Unknown]
  - Rhinitis allergic [Unknown]
  - Rhinorrhoea [Unknown]
  - Nasal congestion [Unknown]
  - Confusional state [Unknown]
